FAERS Safety Report 5746187-X (Version None)
Quarter: 2008Q2

REPORT INFORMATION
  Report Type: 
  Country: None (occurrence: None)
  Receive Date: 20080520
  Receipt Date: 20080507
  Transmission Date: 20081010
  Serious: Yes (Death, Other)
  Sender: FDA-Public Use
  Company Number: 2007-03954

PATIENT
  Age: 58 Year
  Sex: Male
  Weight: 47 kg

DRUGS (10)
  1. VELCADE [Suspect]
     Indication: MULTIPLE MYELOMA
     Dosage: 2.00 MG, INTRAVENOUS
     Route: 042
     Dates: start: 20071119, end: 20071122
  2. DEXAMETHASONE TAB [Concomitant]
  3. DIFLUCAN [Concomitant]
  4. SULFAMETHOXAZOLE AND TRIMETHOPRIM [Concomitant]
  5. MUCOSTA (REBAMIPIDE) [Concomitant]
  6. MAGNESIUM OXIDE (MAGNESIUM OXIDE) [Concomitant]
  7. ZOLPIDEM TARTRATE [Concomitant]
  8. BONALON [Concomitant]
  9. CIPROFLOXACIN HCL [Concomitant]
  10. BFLUID [Concomitant]

REACTIONS (10)
  - DIALYSIS [None]
  - DRUG EFFECT INCREASED [None]
  - HAEMOGLOBIN DECREASED [None]
  - HEPATIC FUNCTION ABNORMAL [None]
  - PLATELET COUNT DECREASED [None]
  - PYREXIA [None]
  - RENAL DISORDER [None]
  - TREATMENT FAILURE [None]
  - TUMOUR LYSIS SYNDROME [None]
  - WHITE BLOOD CELL COUNT DECREASED [None]
